FAERS Safety Report 18279695 (Version 3)
Quarter: 2021Q3

REPORT INFORMATION
  Report Type: Spontaneous
  Country: US (occurrence: US)
  Receive Date: 20200917
  Receipt Date: 20210820
  Transmission Date: 20211014
  Serious: Yes (Other)
  Sender: FDA-Public Use
  Company Number: US-PFIZER INC-2018531938

PATIENT
  Age: 74 Year
  Sex: Male

DRUGS (1)
  1. LYRICA [Suspect]
     Active Substance: PREGABALIN
     Indication: POLYNEUROPATHY
     Dosage: 150 MG, THRICE A DAY (1 CAPSULE 1 TO 3 HOURS BEFORE BEDTIME IN THE EVENING/1 CAPSULE EVERY 8 HOURS)
     Route: 048

REACTIONS (3)
  - Intentional dose omission [Unknown]
  - Confusional state [Unknown]
  - Pancreatic carcinoma [Unknown]
